FAERS Safety Report 24558493 (Version 6)
Quarter: 2024Q4

REPORT INFORMATION
  Report Type: Report from Study
  Country: US (occurrence: US)
  Receive Date: 20241029
  Receipt Date: 20241230
  Transmission Date: 20250115
  Serious: Yes (Hospitalization)
  Sender: SERVIER
  Company Number: US-SERVIER-S24012630

PATIENT

DRUGS (2)
  1. VORASIDENIB [Suspect]
     Active Substance: VORASIDENIB
     Indication: Oligodendroglioma
     Dosage: 40 MG, QD
     Route: 048
     Dates: start: 20240529, end: 20240930
  2. LEVETIRACETAM [Concomitant]
     Active Substance: LEVETIRACETAM
     Indication: Seizure
     Dosage: 750 MG, BID
     Route: 048
     Dates: start: 20231130

REACTIONS (6)
  - Alanine aminotransferase increased [Recovered/Resolved]
  - Aspartate aminotransferase increased [Recovered/Resolved]
  - Bilirubin conjugated increased [Recovering/Resolving]
  - Blood bilirubin increased [Recovered/Resolved]
  - Drug-induced liver injury [Recovering/Resolving]
  - Drug-induced liver injury [Recovering/Resolving]

NARRATIVE: CASE EVENT DATE: 20240930
